FAERS Safety Report 6439248-3 (Version None)
Quarter: 2009Q4

REPORT INFORMATION
  Report Type: 
  Country: None (occurrence: None)
  Receive Date: 20091111
  Receipt Date: 20091111
  Transmission Date: 20100525
  Serious: Yes (Other)
  Sender: FDA-Public Use
  Company Number: None

PATIENT
  Age: 40 Year
  Sex: Male
  Weight: 90.7194 kg

DRUGS (1)
  1. PROPECIA [Suspect]
     Indication: ALOPECIA
     Dosage: 1MG TABLET 1 PER DAY PO
     Route: 048
     Dates: start: 20041001, end: 20091110

REACTIONS (2)
  - ALANINE AMINOTRANSFERASE INCREASED [None]
  - LIVER INJURY [None]
